FAERS Safety Report 5907559-3 (Version None)
Quarter: 2008Q4

REPORT INFORMATION
  Report Type: 
  Country: None (occurrence: None)
  Receive Date: 20081003
  Receipt Date: 20080924
  Transmission Date: 20090506
  Serious: Yes (Hospitalization)
  Sender: FDA-Public Use
  Company Number: FR-ABBOTT-08P-056-0478125-00

PATIENT

DRUGS (1)
  1. DEPAKENE [Suspect]
     Indication: ATYPICAL BENIGN PARTIAL EPILEPSY
     Dates: start: 20080501

REACTIONS (1)
  - TYPE 1 DIABETES MELLITUS [None]
